FAERS Safety Report 7238323 (Version 2)
Quarter: 2014Q1

REPORT INFORMATION
  Report Type: Spontaneous
  Country: US (occurrence: US)
  Receive Date: 20100106
  Receipt Date: 20140130
  Transmission Date: 20141002
  Serious: Yes (Hospitalization, Other)
  Sender: FDA-Public Use
  Company Number: US-JNJFOC-20091207676

PATIENT
  Sex: Female
  Weight: 98.88 kg

DRUGS (24)
  1. SANDOZ FENTANYL TRANSDERMAL SYSTEM [Suspect]
     Indication: PAIN IN EXTREMITY
     Route: 062
     Dates: start: 2002
  2. SANDOZ FENTANYL TRANSDERMAL SYSTEM [Suspect]
     Indication: PAIN IN EXTREMITY
     Route: 062
     Dates: start: 2008
  3. SANDOZ FENTANYL TRANSDERMAL SYSTEM [Suspect]
     Indication: PAIN IN EXTREMITY
     Route: 062
     Dates: end: 2008
  4. SANDOZ FENTANYL TRANSDERMAL SYSTEM [Suspect]
     Indication: ARTHRALGIA
     Route: 062
     Dates: start: 2008
  5. SANDOZ FENTANYL TRANSDERMAL SYSTEM [Suspect]
     Indication: ARTHRALGIA
     Route: 062
     Dates: end: 2008
  6. SANDOZ FENTANYL TRANSDERMAL SYSTEM [Suspect]
     Indication: ARTHRALGIA
     Route: 062
     Dates: start: 2002
  7. SANDOZ FENTANYL TRANSDERMAL SYSTEM [Suspect]
     Indication: BACK PAIN
     Route: 062
     Dates: end: 2008
  8. SANDOZ FENTANYL TRANSDERMAL SYSTEM [Suspect]
     Indication: BACK PAIN
     Route: 062
     Dates: start: 2002
  9. SANDOZ FENTANYL TRANSDERMAL SYSTEM [Suspect]
     Indication: BACK PAIN
     Route: 062
     Dates: start: 2008
  10. SANDOZ FENTANYL TRANSDERMAL SYSTEM [Suspect]
     Indication: NECK PAIN
     Route: 062
     Dates: start: 2002
  11. SANDOZ FENTANYL TRANSDERMAL SYSTEM [Suspect]
     Indication: NECK PAIN
     Route: 062
     Dates: start: 2008
  12. SANDOZ FENTANYL TRANSDERMAL SYSTEM [Suspect]
     Indication: NECK PAIN
     Route: 062
     Dates: end: 2008
  13. ESTRADIOL [Concomitant]
     Indication: OESTROGEN REPLACEMENT THERAPY
     Route: 048
     Dates: start: 2002
  14. VESICARE [Concomitant]
     Indication: BLADDER DISORDER
     Route: 048
     Dates: start: 2002
  15. ZOLOFT [Concomitant]
     Indication: FIBROMYALGIA
     Route: 048
  16. SYNTHROID [Concomitant]
     Indication: HYPOTHYROIDISM
     Route: 048
  17. KAPIDEX [Concomitant]
     Indication: GASTROOESOPHAGEAL REFLUX DISEASE
     Route: 048
  18. SINGULAIR [Concomitant]
     Indication: ASTHMA
     Route: 048
  19. ZOFRAN [Concomitant]
     Indication: NAUSEA
     Route: 048
  20. AMBIEN [Concomitant]
     Indication: SLEEP DISORDER
     Route: 048
  21. XANAX [Concomitant]
     Indication: SLEEP DISORDER
     Route: 048
  22. LIDODERM [Concomitant]
     Indication: PAIN
     Dosage: 5% PATCH UPTO 3 PATCHES IN ONE DAY
     Route: 062
  23. FLECTOR PATCHES [Concomitant]
     Indication: ANTIINFLAMMATORY THERAPY
     Dosage: 1.3% PATCH DAILY AS NEEDED
     Route: 062
  24. FLEXERIL [Concomitant]
     Indication: MUSCLE SPASMS
     Dosage: 1 OR 2 TABLETS AS NECESSARY
     Route: 048

REACTIONS (7)
  - Menorrhagia [Recovered/Resolved]
  - Abdominal pain [Recovered/Resolved]
  - Nausea [Unknown]
  - Incorrect dose administered [Unknown]
  - Drug withdrawal syndrome [Recovered/Resolved]
  - Product quality issue [Unknown]
  - Wrong technique in drug usage process [Unknown]
